FAERS Safety Report 10237925 (Version 2)
Quarter: 2014Q3

REPORT INFORMATION
  Report Type: Spontaneous
  Country: US (occurrence: US)
  Receive Date: 20140616
  Receipt Date: 20140721
  Transmission Date: 20150326
  Serious: Yes (Other)
  Sender: FDA-Public Use
  Company Number: US-SHIRE-US201402918

PATIENT
  Age: 50 Year
  Sex: Female
  Weight: 48.35 kg

DRUGS (2)
  1. FOSRENOL [Suspect]
     Active Substance: LANTHANUM CARBONATE
     Indication: HYPERPHOSPHATAEMIA
     Dosage: 1000 MG, 3X/DAY:TID
     Route: 048
     Dates: start: 201001, end: 201306
  2. FOSRENOL [Suspect]
     Active Substance: LANTHANUM CARBONATE
     Dosage: (TWO 1000MG TABLETS) 2000 MG, 3X/DAY:TID
     Route: 048
     Dates: start: 201306

REACTIONS (11)
  - Syncope [Recovered/Resolved]
  - Blood pressure decreased [Unknown]
  - Retching [Not Recovered/Not Resolved]
  - Drug ineffective [Recovered/Resolved]
  - Memory impairment [Unknown]
  - Blood parathyroid hormone increased [Unknown]
  - Diarrhoea [Recovered/Resolved]
  - Blood phosphorus increased [Recovered/Resolved]
  - Product quality issue [Unknown]
  - Dysphagia [Not Recovered/Not Resolved]
  - Feeling abnormal [Recovered/Resolved]

NARRATIVE: CASE EVENT DATE: 201401
